FAERS Safety Report 6014129-8 (Version None)
Quarter: 2008Q4

REPORT INFORMATION
  Report Type: 
  Country: None (occurrence: None)
  Receive Date: 20081219
  Receipt Date: 20080102
  Transmission Date: 20090506
  Serious: No
  Sender: FDA-Public Use
  Company Number: A0701026A

PATIENT
  Age: 73 Year
  Sex: Male
  Weight: 118.2 kg

DRUGS (9)
  1. AVODART [Suspect]
     Indication: BENIGN PROSTATIC HYPERPLASIA
     Dosage: 1CAP TWICE PER DAY
     Route: 048
     Dates: start: 20071213
  2. CO Q10 [Concomitant]
  3. FOLIC ACID [Concomitant]
  4. POLICOSANOL [Concomitant]
  5. LOVAZA [Concomitant]
  6. ASCORBIC ACID [Concomitant]
  7. SAW PALMETTO [Concomitant]
  8. ASPIRIN [Concomitant]
  9. VITAMIN [Concomitant]

REACTIONS (1)
  - DRUG INEFFECTIVE [None]
